FAERS Safety Report 7267617-0 (Version None)
Quarter: 2011Q1

REPORT INFORMATION
  Report Type: 
  Country: None (occurrence: None)
  Receive Date: 20110201
  Receipt Date: 20110127
  Transmission Date: 20110831
  Serious: Yes (Hospitalization)
  Sender: FDA-Public Use
  Company Number: US-B.I. PHARMACEUTICALS,INC./RIDGEFIELD-2011-BP-01740BP

PATIENT
  Age: 64 Year
  Sex: Female

DRUGS (18)
  1. VITAMIN B COMPLEX CAP [Concomitant]
     Indication: VITAMIN SUPPLEMENTATION
  2. PROLIA [Concomitant]
     Indication: BONE DENSITY ABNORMAL
  3. PRADAXA [Suspect]
     Indication: ATRIAL FIBRILLATION
     Dosage: 300 MG
     Dates: start: 20110104
  4. MAXAIR [Concomitant]
     Indication: CHRONIC OBSTRUCTIVE PULMONARY DISEASE
  5. DIGOXIN [Concomitant]
     Indication: CARDIAC DISORDER
  6. DIOVAN [Concomitant]
     Indication: CARDIAC DISORDER
  7. VITAMIN D [Concomitant]
     Indication: VITAMIN D DEFICIENCY
     Dosage: 1000 U
  8. MULTIPLE VITAMIN [Concomitant]
     Indication: VITAMIN SUPPLEMENTATION
  9. FLONASE [Concomitant]
     Indication: MULTIPLE ALLERGIES
  10. SPIRIVA [Suspect]
     Indication: CHRONIC OBSTRUCTIVE PULMONARY DISEASE
     Dosage: 18 MCG
     Route: 055
  11. LIPITOR [Concomitant]
     Indication: BLOOD CHOLESTEROL INCREASED
  12. CALCIUM WITH VITAMIN D [Concomitant]
     Indication: VITAMIN D DEFICIENCY
  13. BYSTOLIC [Concomitant]
     Indication: CARDIAC DISORDER
  14. QVAR 40 [Concomitant]
     Indication: CHRONIC OBSTRUCTIVE PULMONARY DISEASE
  15. IPRATROPIUM HBR [Concomitant]
     Indication: MULTIPLE ALLERGIES
  16. VITAMIN D [Concomitant]
     Dates: start: 20101201, end: 20101201
  17. CALCIUM WITH VITAMIN D [Concomitant]
     Indication: BONE DENSITY ABNORMAL
  18. QVAR 40 [Concomitant]
     Indication: ASTHMA

REACTIONS (3)
  - ATRIAL FIBRILLATION [None]
  - HEART RATE INCREASED [None]
  - BLOOD PRESSURE SYSTOLIC INCREASED [None]
